FAERS Safety Report 6390567-9 (Version None)
Quarter: 2009Q4

REPORT INFORMATION
  Report Type: 
  Country: None (occurrence: None)
  Receive Date: 20091005
  Receipt Date: 20091005
  Transmission Date: 20100525
  Serious: Yes (Hospitalization, Other)
  Sender: FDA-Public Use
  Company Number: None

PATIENT
  Sex: Female

DRUGS (10)
  1. HYDROCHLOROTHIAZIDE [Suspect]
     Dosage: ONE TABLET  ONCE ORAL
     Route: 048
  2. METOPROLOL (METOPROLOL) [Suspect]
     Dosage: 100 MG, 2 TABLETS ONCE ORAL
     Route: 048
  3. MOLSIDOMIN (MOLSIDOMIN 8) [Suspect]
     Dosage: (8 MG, 1 (CONT.)  (TO NOT CONTINUING)
  4. PALLADON /00080902/ (PALLADON) (NOT SPECIFIED) [Suspect]
     Dosage: ONCE  ORAL (CONT.)  (TO NOT CONTINUING)
     Route: 048
  5. PENTALONG (PENTALONG 50) [Suspect]
     Dosage: 2 TABLETS (CONT.)  (TO NOT CONTINUING)
     Route: 048
  6. RAMIPRIL [Suspect]
     Dosage: 1 TABLET ONCE ORAL  (TO NOT CONTINUING)
     Route: 048
  7. SIMVASTATIN [Suspect]
     Dosage: 1 TABLET ONCE ORAL (TO NOT CONTINUING)
  8. TOREM /01036501/ (TOREM) (NOT SPECIFIED) [Suspect]
     Dosage: 1 TABLET ONCE ORAL (TO NOT CONTINUING)
     Route: 048
  9. ISOKET (ISOKET40) [Suspect]
     Dosage: 120MG, 3  TABLETS ONCE ORAL
  10. AMLODIPINE [Suspect]
     Dosage: 10 MG, 2TABLETS ONCE ORAL
     Route: 048

REACTIONS (1)
  - ACCIDENTAL OVERDOSE [None]
